FAERS Safety Report 6728162-1 (Version None)
Quarter: 2010Q2

REPORT INFORMATION
  Report Type: 
  Country: None (occurrence: None)
  Receive Date: 20100517
  Receipt Date: 20100506
  Transmission Date: 20101027
  Serious: Yes (Hospitalization)
  Sender: FDA-Public Use
  Company Number: A0859003A

PATIENT
  Sex: Male

DRUGS (1)
  1. LAMICTAL [Suspect]
     Indication: DRUG USE FOR UNKNOWN INDICATION
     Route: 048
     Dates: start: 20070321

REACTIONS (4)
  - MECHANICAL VENTILATION [None]
  - RESPIRATORY FAILURE [None]
  - SKIN REACTION [None]
  - THERMAL BURN [None]
